FAERS Safety Report 8974316 (Version 1)
Quarter: 2012Q4

REPORT INFORMATION
  Report Type: Spontaneous
  Country: US (occurrence: None)
  Receive Date: 20121217
  Receipt Date: 20121217
  Transmission Date: 20130627
  Serious: Yes (Other)
  Sender: FDA-Public Use
  Company Number: None

PATIENT
  Age: 32 Year
  Sex: Female
  Weight: 71.67 kg

DRUGS (2)
  1. LEVETIRACETAM [Suspect]
     Dosage: 1 x 2 daily po
     Route: 048
     Dates: start: 20120913, end: 20121216
  2. LEVETIRACETAM [Suspect]
     Dosage: 1 x 2 daily po
     Route: 048
     Dates: start: 20120913, end: 20121216

REACTIONS (11)
  - Abdominal pain [None]
  - Muscle spasms [None]
  - Back pain [None]
  - Neck pain [None]
  - Insomnia [None]
  - Abnormal faeces [None]
  - Disturbance in attention [None]
  - Memory impairment [None]
  - Eating disorder [None]
  - Medication error [None]
  - Poisoning [None]
